FAERS Safety Report 22094648 (Version 2)
Quarter: 2023Q1

REPORT INFORMATION
  Report Type: Spontaneous
  Country: JP (occurrence: JP)
  Receive Date: 20230314
  Receipt Date: 20230328
  Transmission Date: 20230418
  Serious: Yes (Hospitalization)
  Sender: FDA-Public Use
  Company Number: JP-TEVA-2023-JP-2866145

PATIENT
  Age: 60 Year
  Sex: Male

DRUGS (4)
  1. PREDNISOLONE [Suspect]
     Active Substance: PREDNISOLONE
     Indication: Castleman^s disease
     Dosage: 60 MILLIGRAM DAILY;
     Route: 048
  2. TOCILIZUMAB [Suspect]
     Active Substance: TOCILIZUMAB
     Indication: Castleman^s disease
     Route: 065
  3. GANCICLOVIR [Suspect]
     Active Substance: GANCICLOVIR
     Indication: Cytomegalovirus infection
     Route: 065
  4. CYCLOSPORINE [Suspect]
     Active Substance: CYCLOSPORINE
     Indication: Castleman^s disease
     Dosage: 75 MILLIGRAM DAILY;
     Route: 065

REACTIONS (4)
  - Cytomegalovirus infection [Recovered/Resolved]
  - BK virus infection [Recovered/Resolved]
  - Thrombocytopenia [Recovered/Resolved]
  - Blood creatinine increased [Recovered/Resolved]
